FAERS Safety Report 17521663 (Version 3)
Quarter: 2020Q3

REPORT INFORMATION
  Report Type: Report from Study
  Country: DE (occurrence: DE)
  Receive Date: 20200310
  Receipt Date: 20200928
  Transmission Date: 20201102
  Serious: Yes (Other)
  Sender: FDA-Public Use
  Company Number: DE-MYLANLABS-2020M1024452

PATIENT
  Age: 56 Year
  Sex: Female
  Weight: 72 kg

DRUGS (14)
  1. CORNEREGEL [Concomitant]
     Active Substance: DEXPANTHENOL
     Indication: PRODUCT USED FOR UNKNOWN INDICATION
     Dosage: UNK, QD EYE OINTMENT
  2. DOXEPIN [Suspect]
     Active Substance: DOXEPIN
     Indication: BIPOLAR DISORDER
     Dosage: FREQUENCY: ONCE
     Dates: end: 202001
  3. DOXEPIN [Suspect]
     Active Substance: DOXEPIN
     Dosage: FREQUENCY: THREE TIMES TAKING FROM 20 YEARS
  4. QUETIAPINE. [Concomitant]
     Active Substance: QUETIAPINE
     Indication: BIPOLAR DISORDER
     Dosage: STRENGTH: 25 (UNSPECIFIED UNITS)
  5. MAVENCLAD [Suspect]
     Active Substance: CLADRIBINE
     Indication: MULTIPLE SCLEROSIS
     Dosage: FIRST WEEK THERAPY: THE PATIENT TOOK 2 TABLET ON DAY 1
     Route: 048
     Dates: start: 20190416, end: 20190420
  6. MAVENCLAD [Suspect]
     Active Substance: CLADRIBINE
     Indication: RELAPSING-REMITTING MULTIPLE SCLEROSIS
     Dosage: SECOND WEEK THERAPY:
     Route: 048
     Dates: start: 20190515, end: 20190519
  7. PROMETAZIN [Suspect]
     Active Substance: PROMETHAZINE HYDROCHLORIDE
     Dosage: SIGNIFICANTLY REDUCED.
     Dates: end: 202001
  8. PARACETAMOL [Concomitant]
     Active Substance: ACETAMINOPHEN
     Indication: PRODUCT USED FOR UNKNOWN INDICATION
     Dosage: STRENGTH: 500 (UNSPECIFIED UNIT)
  9. BEPANTHEN                          /00178901/ [Concomitant]
     Active Substance: DEXPANTHENOL
     Indication: PRODUCT USED FOR UNKNOWN INDICATION
     Dosage: UNK
  10. SALBUHEXAL [Concomitant]
     Active Substance: ALBUTEROL
     Indication: PRODUCT USED FOR UNKNOWN INDICATION
     Dosage: STRENGTH: 100 (UNSPECIFIED UNITS). FROM APR (UNSPECIFIED YEAR) TO MAY (UNSPECIFIED YEAR).
  11. PROMETAZIN [Suspect]
     Active Substance: PROMETHAZINE HYDROCHLORIDE
     Indication: BIPOLAR DISORDER
     Dosage: STRENGTH 25 (UNSPECIFIED UNITS). 0.33 DAY
     Dates: start: 2014
  12. GANFORT [Concomitant]
     Active Substance: BIMATOPROST\TIMOLOL
     Indication: GLAUCOMA
     Dosage: UNK
  13. MACROGOL [Concomitant]
     Active Substance: POLYETHYLENE GLYCOLS
     Indication: CONSTIPATION
     Dosage: EVERY TWO DAYS WHEN NEEDED.
  14. RIOPAN                             /00141701/ [Concomitant]
     Active Substance: MAGALDRATE
     Indication: PRODUCT USED FOR UNKNOWN INDICATION
     Dosage: STRENGTH: 800 (UNSPECIFIED UNITS)

REACTIONS (15)
  - Headache [Unknown]
  - Insomnia [Unknown]
  - Feeling cold [Unknown]
  - Nasopharyngitis [Not Recovered/Not Resolved]
  - Lymphocyte count decreased [Not Recovered/Not Resolved]
  - Bronchial hyperreactivity [Unknown]
  - Weight increased [Not Recovered/Not Resolved]
  - Restlessness [Unknown]
  - Dental cyst [Not Recovered/Not Resolved]
  - Panic attack [Unknown]
  - Tension [Unknown]
  - Vitreous opacities [Unknown]
  - Listless [Unknown]
  - Hyperkinetic heart syndrome [Recovering/Resolving]
  - Sleep disorder [Unknown]

NARRATIVE: CASE EVENT DATE: 20190416
